FAERS Safety Report 10251138 (Version 2)
Quarter: 2014Q2

REPORT INFORMATION
  Report Type: Spontaneous
  Country: US (occurrence: US)
  Receive Date: 20140620
  Receipt Date: 20140625
  Transmission Date: 20141212
  Serious: No
  Sender: FDA-Public Use
  Company Number: US-009507513-1406USA009059

PATIENT
  Age: 87 Year
  Sex: Female

DRUGS (2)
  1. OXYTROL FOR WOMEN [Suspect]
     Indication: MICTURITION URGENCY
     Dosage: UNK, ONCE
     Route: 062
     Dates: start: 20140601, end: 20140602
  2. NEXIUM [Concomitant]
     Indication: GASTROOESOPHAGEAL REFLUX DISEASE
     Dosage: UNK, UNKNOWN

REACTIONS (4)
  - Urinary retention [Recovered/Resolved]
  - Dizziness [Unknown]
  - Abdominal distension [Recovered/Resolved]
  - Insomnia [Unknown]
